FAERS Safety Report 11189699 (Version 16)
Quarter: 2018Q2

REPORT INFORMATION
  Report Type: Report from Study
  Country: AT (occurrence: AT)
  Receive Date: 20150615
  Receipt Date: 20180502
  Transmission Date: 20180711
  Serious: Yes (Death, Hospitalization, Other)
  Sender: FDA-Public Use
  Company Number: AT-INCYTE CORPORATION-2015IN002020

PATIENT

DRUGS (28)
  1. RESONIUM [Concomitant]
     Active Substance: SODIUM POLYSTYRENE SULFONATE
     Indication: HYPERKALAEMIA
     Dosage: UNK, QOD
     Route: 065
     Dates: start: 20140526
  2. INTERFERON ALFA NOS [Concomitant]
     Active Substance: INTERFERON ALFA-2A OR INTERFERON ALFA-2B
     Indication: PRODUCT USED FOR UNKNOWN INDICATION
     Dosage: UNK
     Route: 065
     Dates: start: 1990
  3. INTERFERON ALFA NOS [Concomitant]
     Active Substance: INTERFERON ALFA-2A OR INTERFERON ALFA-2B
     Dosage: UNK
     Route: 065
  4. INTERFERON ALFA NOS [Concomitant]
     Active Substance: INTERFERON ALFA-2A OR INTERFERON ALFA-2B
     Dosage: UNK
     Route: 065
  5. NEORECORMON [Concomitant]
     Active Substance: ERYTHROPOIETIN
     Dosage: UNK
     Route: 065
  6. AQUAPHORIL [Concomitant]
     Active Substance: XIPAMIDE
     Indication: PRODUCT USED FOR UNKNOWN INDICATION
     Dosage: 1 DF, QD (IN THE MORNING)
     Route: 065
  7. INTERFERON ALFA NOS [Concomitant]
     Active Substance: INTERFERON ALFA-2A OR INTERFERON ALFA-2B
     Dosage: UNK
     Route: 065
  8. JAKAVI [Suspect]
     Active Substance: RUXOLITINIB
     Dosage: 10 MG, BID
     Route: 048
     Dates: start: 20140828
  9. JAKAVI [Suspect]
     Active Substance: RUXOLITINIB
     Dosage: 15 MG, BID (30 MG QD)
     Route: 048
     Dates: start: 20141125
  10. NEORECORMON [Concomitant]
     Active Substance: ERYTHROPOIETIN
     Dosage: UNK
     Route: 065
  11. OLEOVIT-D3 [Concomitant]
     Indication: OSTEOPOROSIS
     Dosage: 30 PH ONCE A WEEK
     Route: 065
     Dates: start: 20130225
  12. OLEOVIT-D3 [Concomitant]
     Dosage: 30 PH ONCE A WEEK
     Route: 065
  13. INTERFERON ALFA NOS [Concomitant]
     Active Substance: INTERFERON ALFA-2A OR INTERFERON ALFA-2B
     Dosage: UNK
     Route: 065
  14. NEORECORMON [Concomitant]
     Active Substance: ERYTHROPOIETIN
     Dosage: UNK
     Route: 065
  15. CONCOR [Concomitant]
     Active Substance: BISOPROLOL FUMARATE
     Indication: PRODUCT USED FOR UNKNOWN INDICATION
     Dosage: 1 DF, QD (IN THE MORNING)
  16. NEORECORMON [Concomitant]
     Active Substance: ERYTHROPOIETIN
     Dosage: UNK
     Route: 065
  17. EXFORGE [Concomitant]
     Active Substance: AMLODIPINE BESYLATE\VALSARTAN
     Indication: PRODUCT USED FOR UNKNOWN INDICATION
     Dosage: 1 DF, QD (IN THE MORNING)
     Route: 065
  18. DREISACARB [Concomitant]
     Active Substance: CALCIUM CARBONATE
     Indication: HYPERCALCAEMIA
     Dosage: 1000 MG, BID
     Route: 065
     Dates: start: 20120824
  19. INTERFERON ALFA NOS [Concomitant]
     Active Substance: INTERFERON ALFA-2A OR INTERFERON ALFA-2B
     Dosage: UNK
     Route: 065
  20. INTERFERON ALFA NOS [Concomitant]
     Active Substance: INTERFERON ALFA-2A OR INTERFERON ALFA-2B
     Dosage: UNK
     Route: 065
  21. LITALIR [Concomitant]
     Active Substance: HYDROXYUREA
     Indication: PRODUCT USED FOR UNKNOWN INDICATION
     Dosage: UNK
     Route: 065
     Dates: start: 1995
  22. JAKAVI [Suspect]
     Active Substance: RUXOLITINIB
     Indication: MYELOFIBROSIS
     Dosage: UNK
     Route: 048
     Dates: start: 20130723
  23. RESONIUM [Concomitant]
     Active Substance: SODIUM POLYSTYRENE SULFONATE
     Dosage: UNK, QOD
     Route: 065
  24. LITALIR [Concomitant]
     Active Substance: HYDROXYUREA
     Dosage: UNK
     Route: 065
  25. NEORECORMON [Concomitant]
     Active Substance: ERYTHROPOIETIN
     Indication: PRODUCT USED FOR UNKNOWN INDICATION
     Dosage: UNK
     Route: 065
     Dates: start: 2010
  26. FURON                              /00032601/ [Concomitant]
     Active Substance: FUROSEMIDE
     Indication: PRODUCT USED FOR UNKNOWN INDICATION
     Dosage: 2 DF, QD (IN THE MORNING)
     Route: 065
  27. AQUAPHORIL [Concomitant]
     Active Substance: XIPAMIDE
  28. EUTHYROX [Concomitant]
     Active Substance: LEVOTHYROXINE SODIUM
     Indication: PRODUCT USED FOR UNKNOWN INDICATION
     Dosage: 1 DF, QD (IN THE MORNING)
     Route: 065

REACTIONS (21)
  - Dyspnoea exertional [Fatal]
  - Fatigue [Fatal]
  - Oedema peripheral [Not Recovered/Not Resolved]
  - Muscle spasms [Recovered/Resolved]
  - Pleural effusion [Not Recovered/Not Resolved]
  - Influenza like illness [Unknown]
  - Stress [Unknown]
  - Umbilical hernia [Unknown]
  - Ascites [Recovered/Resolved]
  - Nocturia [Unknown]
  - Cardiac murmur [Unknown]
  - Cough [Unknown]
  - Pancytopenia [Fatal]
  - Brain natriuretic peptide increased [Unknown]
  - Blood alkaline phosphatase increased [Unknown]
  - Ascites [Not Recovered/Not Resolved]
  - Blood lactate dehydrogenase increased [Unknown]
  - Hypertension [Unknown]
  - Abdominal distension [Unknown]
  - Hypothyroidism [Unknown]
  - Myelofibrosis [Fatal]

NARRATIVE: CASE EVENT DATE: 20131219
